FAERS Safety Report 7345745-9 (Version None)
Quarter: 2011Q1

REPORT INFORMATION
  Report Type: 
  Country: None (occurrence: None)
  Receive Date: 20110308
  Receipt Date: 20110308
  Transmission Date: 20110831
  Serious: No
  Sender: FDA-Public Use
  Company Number: None

PATIENT
  Age: 5 Year
  Sex: Female

DRUGS (1)
  1. FLOVENT HFA [Suspect]
     Indication: ASTHMA
     Dates: start: 20110201, end: 20110228

REACTIONS (1)
  - COUGH [None]
